FAERS Safety Report 5416828-5 (Version None)
Quarter: 2007Q3

REPORT INFORMATION
  Report Type: 
  Country: None (occurrence: None)
  Receive Date: 20070815
  Receipt Date: 20070815
  Transmission Date: 20080115
  Serious: Yes (Hospitalization)
  Sender: FDA-Public Use
  Company Number: None

PATIENT
  Sex: Female

DRUGS (16)
  1. CETUXIMAB [Suspect]
     Indication: PANCREATIC CARCINOMA
     Dosage: 402 MG IV
     Route: 042
     Dates: start: 20070730
  2. GEMCITABINE HCL [Suspect]
     Indication: PANCREATIC CARCINOMA
     Dosage: 1610 MG IV
     Route: 042
     Dates: start: 20070730
  3. OXALIPLATIN [Suspect]
     Indication: PANCREATIC CARCINOMA
     Dosage: 161 MG IV
     Route: 042
     Dates: start: 20070731
  4. SYNTHROID [Concomitant]
  5. MONOPRIL [Concomitant]
  6. NORVASC [Concomitant]
  7. PANCREASE [Concomitant]
  8. M.V.I. [Concomitant]
  9. ATENOLOL [Concomitant]
  10. PROTONIX [Concomitant]
  11. MAGNESIUM GLUCONATE [Concomitant]
  12. ZOFRAN [Concomitant]
  13. COMPAZINE [Concomitant]
  14. TYLENOL [Concomitant]
  15. IMODIUM [Concomitant]
  16. LOMOTIL [Concomitant]

REACTIONS (2)
  - DIARRHOEA [None]
  - VOMITING [None]
